FAERS Safety Report 7633280-X (Version None)
Quarter: 2011Q3

REPORT INFORMATION
  Report Type: 
  Country: None (occurrence: None)
  Receive Date: 20110725
  Receipt Date: 20110713
  Transmission Date: 20111222
  Serious: Yes (Other)
  Sender: FDA-Public Use
  Company Number: US-ROCHE-752268

PATIENT
  Sex: Male
  Weight: 36.3 kg

DRUGS (5)
  1. ACCUTANE [Suspect]
     Route: 065
     Dates: start: 20080901
  2. ACCUTANE [Suspect]
     Route: 065
     Dates: start: 20061001, end: 20061201
  3. ACCUTANE [Suspect]
     Route: 065
     Dates: start: 20090101, end: 20090101
  4. ACCUTANE [Suspect]
     Route: 065
     Dates: start: 20050701, end: 20050901
  5. ACCUTANE [Suspect]
     Indication: ACNE
     Route: 065
     Dates: start: 20030101, end: 20040101

REACTIONS (7)
  - SUICIDAL IDEATION [None]
  - INFLAMMATORY BOWEL DISEASE [None]
  - MENTAL DISORDER [None]
  - RECTAL HAEMORRHAGE [None]
  - DEPRESSION [None]
  - CROHN'S DISEASE [None]
  - ABDOMINAL PAIN [None]
